FAERS Safety Report 10176396 (Version 1)
Quarter: 2014Q2

REPORT INFORMATION
  Report Type: Spontaneous
  Country: US (occurrence: US)
  Receive Date: 20140516
  Receipt Date: 20140516
  Transmission Date: 20141212
  Serious: Yes (Other)
  Sender: FDA-Public Use
  Company Number: PHHY2014US057101

PATIENT
  Age: 46 Year
  Sex: Female

DRUGS (1)
  1. ACETYLSALICYLIC ACID [Suspect]

REACTIONS (10)
  - Cardiac arrest [Unknown]
  - Upper-airway cough syndrome [Unknown]
  - Nasal congestion [Unknown]
  - Throat irritation [Unknown]
  - Sinusitis [Unknown]
  - Asthma [Unknown]
  - Nasal discharge discolouration [Unknown]
  - Hyposmia [Unknown]
  - Hypogeusia [Unknown]
  - Headache [Unknown]
